FAERS Safety Report 19464156 (Version 2)
Quarter: 2021Q3

REPORT INFORMATION
  Report Type: Spontaneous
  Country: FR (occurrence: FR)
  Receive Date: 20210627
  Receipt Date: 20210826
  Transmission Date: 20211014
  Serious: Yes (Hospitalization, Disabling, Other)
  Sender: FDA-Public Use
  Company Number: FR-AUROBINDO-AUR-APL-2021-026097

PATIENT
  Sex: Female
  Weight: 48 kg

DRUGS (40)
  1. ATENOLOL. [Concomitant]
     Active Substance: ATENOLOL
     Indication: PRODUCT USED FOR UNKNOWN INDICATION
     Dosage: 1 DOSAGE FORM, ONCE A DAY
     Route: 065
     Dates: start: 201706
  2. LASILIX [Concomitant]
     Active Substance: FUROSEMIDE
     Dosage: 0.25 DOSAGE FORM, ONCE A DAY1 / 4UNIT ON MORNING
     Route: 065
     Dates: start: 201707
  3. CORDARONE [Suspect]
     Active Substance: AMIODARONE HYDROCHLORIDE
     Dosage: UNK
     Route: 065
     Dates: end: 201802
  4. CORDARONE [Suspect]
     Active Substance: AMIODARONE HYDROCHLORIDE
     Dosage: 1 UNIT ON MORNING EXCEPT SUNDAY
     Route: 065
     Dates: start: 201707, end: 20170713
  5. DIFFU K [Concomitant]
     Active Substance: POTASSIUM CHLORIDE
     Dosage: 3 DOSAGE FORM(1 IN THE MORNING, 1 IN THE AFTERNOON, 1 IN THE EVENING )
     Route: 065
  6. FORLAX [Concomitant]
     Active Substance: POLYETHYLENE GLYCOL 4000
     Indication: PRODUCT USED FOR UNKNOWN INDICATION
     Dosage: 1 DOSAGE FORM, ONCE A DAY
     Route: 065
     Dates: start: 20170803
  7. MOVICOL [Concomitant]
     Active Substance: POLYETHYLENE GLYCOL 3350\POTASSIUM CHLORIDE\SODIUM BICARBONATE\SODIUM CHLORIDE
     Dosage: 2 DOSAGE FORM(1 IN THE MORNING, 1 IN THE EVENING )
     Route: 065
  8. STILNOX [Concomitant]
     Active Substance: ZOLPIDEM TARTRATE
     Dosage: UNK(1/2 AT BEDTIME )
     Route: 065
  9. AMIODARONE [Suspect]
     Active Substance: AMIODARONE
     Indication: ATRIAL FIBRILLATION
     Dosage: 1 UNIT ON MORNING EXCEPT SUNDAY  AND SATURDAY
     Route: 065
     Dates: start: 20170515, end: 20180220
  10. CORDARONE [Suspect]
     Active Substance: AMIODARONE HYDROCHLORIDE
     Dosage: UNK
     Route: 065
     Dates: start: 20170810
  11. ATENOLOL. [Concomitant]
     Active Substance: ATENOLOL
     Dosage: UNK(1 IN THE MORNING )
     Route: 065
  12. CYMBALTA [Concomitant]
     Active Substance: DULOXETINE HYDROCHLORIDE
     Indication: PRODUCT USED FOR UNKNOWN INDICATION
     Dosage: UNK
     Route: 065
  13. DIFFU K [Concomitant]
     Active Substance: POTASSIUM CHLORIDE
     Dosage: 2 DOSAGE FORM, 3 TIMES A DAY
     Route: 065
     Dates: start: 20170803
  14. LASILIX [Concomitant]
     Active Substance: FUROSEMIDE
     Indication: PRODUCT USED FOR UNKNOWN INDICATION
     Dosage: 1 DOSAGE FORM, ONCE A DAY ON MORNING
     Route: 065
     Dates: start: 20170515, end: 201707
  15. MOVICOL [Concomitant]
     Active Substance: POLYETHYLENE GLYCOL 3350\POTASSIUM CHLORIDE\SODIUM BICARBONATE\SODIUM CHLORIDE
     Indication: PRODUCT USED FOR UNKNOWN INDICATION
     Dosage: 1 DOSAGE FORM, TWO TIMES A DAY
     Route: 065
     Dates: start: 201706
  16. ZOLPIDEM [Concomitant]
     Active Substance: ZOLPIDEM TARTRATE
     Indication: PRODUCT USED FOR UNKNOWN INDICATION
     Dosage: UNK
     Route: 065
     Dates: start: 2018
  17. FLAGYL [Concomitant]
     Active Substance: METRONIDAZOLE\METRONIDAZOLE HYDROCHLORIDE
     Indication: PRODUCT USED FOR UNKNOWN INDICATION
     Dosage: UNK
     Route: 065
  18. ROCEPHIN [Concomitant]
     Active Substance: CEFTRIAXONE SODIUM
     Indication: PRODUCT USED FOR UNKNOWN INDICATION
     Dosage: UNK
     Route: 065
  19. CORDARONE [Suspect]
     Active Substance: AMIODARONE HYDROCHLORIDE
     Dosage: 2 DOSAGE FORM, ONCE A DAY ON MORNING
     Route: 065
     Dates: start: 20170515
  20. PREDNISONE. [Concomitant]
     Active Substance: PREDNISONE
     Indication: PRODUCT USED FOR UNKNOWN INDICATION
     Dosage: 40 MILLIGRAM, ONCE A DAY
     Route: 065
     Dates: start: 20180123
  21. XARELTO [Concomitant]
     Active Substance: RIVAROXABAN
     Indication: PRODUCT USED FOR UNKNOWN INDICATION
     Dosage: 1 DOSAGE FORM, ONCE A DAY ON MORNING
     Route: 065
     Dates: start: 20170515, end: 201707
  22. CORDARONE [Suspect]
     Active Substance: AMIODARONE HYDROCHLORIDE
     Indication: ATRIAL FIBRILLATION
     Dosage: UNK
     Route: 065
  23. ALDACTONE [Concomitant]
     Active Substance: SPIRONOLACTONE
     Indication: CARDIAC FAILURE
     Dosage: 0.5 DOSAGE FORM, ONCE A DAY
     Route: 065
     Dates: start: 20170803
  24. ATENOLOL. [Concomitant]
     Active Substance: ATENOLOL
     Dosage: 0.5 DOSAGE FORM, ONCE A DAY (1 / 2UNIT DAILY ON MORNING)
     Route: 065
     Dates: start: 20170803
  25. DIFFU K [Concomitant]
     Active Substance: POTASSIUM CHLORIDE
     Indication: PRODUCT USED FOR UNKNOWN INDICATION
     Dosage: 3 DOSAGE FORM, ONCE A DAY
     Route: 065
  26. DIFFU K [Concomitant]
     Active Substance: POTASSIUM CHLORIDE
     Dosage: 1 DOSAGE FORM, 3 TIMES A DAY
     Route: 065
     Dates: start: 201707, end: 201707
  27. LANSOPRAZOLE. [Concomitant]
     Active Substance: LANSOPRAZOLE
     Indication: PRODUCT USED FOR UNKNOWN INDICATION
     Dosage: 1 DOSAGE FORM, ONCE A DAY
     Route: 065
     Dates: start: 2018
  28. XARELTO [Concomitant]
     Active Substance: RIVAROXABAN
     Dosage: 1 DOSAGE FORM, ONCE A DAY ON EVENING
     Route: 065
     Dates: start: 201707
  29. AMIODARONE [Suspect]
     Active Substance: AMIODARONE
     Dosage: UNK(1 UNIT ON MORNING EXCEPT SUNDAY  AND SATURDAY )
     Route: 065
     Dates: start: 201708
  30. ALDACTONE [Concomitant]
     Active Substance: SPIRONOLACTONE
     Indication: OEDEMA
     Dosage: UNK
     Route: 065
  31. DEBRIDAT [Concomitant]
     Active Substance: TRIMEBUTINE MALEATE
     Indication: PRODUCT USED FOR UNKNOWN INDICATION
     Dosage: UNK
     Route: 065
  32. DIFFU K [Concomitant]
     Active Substance: POTASSIUM CHLORIDE
     Dosage: 1 DOSAGE FORM, TWO TIMES A DAY
     Route: 065
     Dates: start: 201707
  33. DIFFU K [Concomitant]
     Active Substance: POTASSIUM CHLORIDE
     Dosage: 1 DOSAGE FORM, TWO TIMES A DAY(1 DF, BID, 1 UNIT TWICE DAILY )
     Route: 065
  34. LASILIX [Concomitant]
     Active Substance: FUROSEMIDE
     Dosage: UNK(1 IN THE MORNING, 1 IN THE AFTERNOON )
     Route: 065
  35. LASILIX [Concomitant]
     Active Substance: FUROSEMIDE
     Dosage: 1 DOSAGE FORM, ONCE A DAY ON MORNING
     Route: 065
     Dates: start: 2018
  36. LEVOTHYROX [Concomitant]
     Active Substance: LEVOTHYROXINE
     Indication: PRODUCT USED FOR UNKNOWN INDICATION
     Dosage: 1 DOSAGE FORM, ONCE A DAY ON MORNING
     Route: 065
     Dates: start: 2003
  37. CORDARONE [Suspect]
     Active Substance: AMIODARONE HYDROCHLORIDE
     Dosage: 1 DOSAGE FORM, ONCE A DAY, ON MORNING
     Route: 065
  38. DULOXETINE. [Concomitant]
     Active Substance: DULOXETINE
     Indication: PRODUCT USED FOR UNKNOWN INDICATION
     Dosage: 2 DOSAGE FORM, ONCE A DAY
     Route: 065
     Dates: start: 20170803
  39. STILNOX [Concomitant]
     Active Substance: ZOLPIDEM TARTRATE
     Indication: PRODUCT USED FOR UNKNOWN INDICATION
     Dosage: 10 MILLIGRAM, ONCE A DAY ON EVENING
     Route: 065
  40. UVEDOSE [Concomitant]
     Active Substance: CHOLECALCIFEROL
     Indication: PRODUCT USED FOR UNKNOWN INDICATION
     Dosage: UNK
     Route: 065
     Dates: start: 2018

REACTIONS (34)
  - Visual acuity reduced [Recovering/Resolving]
  - Aortic valve calcification [Unknown]
  - Pleural effusion [Recovering/Resolving]
  - Optic neuropathy [Unknown]
  - Diplopia [Unknown]
  - Oedema peripheral [Recovered/Resolved]
  - Optic neuritis [Not Recovered/Not Resolved]
  - Cardiac failure [Recovered/Resolved]
  - Hypercapnia [Recovering/Resolving]
  - Hypoventilation [Recovering/Resolving]
  - Eye haemorrhage [Unknown]
  - Optic atrophy [Unknown]
  - Atrial fibrillation [Unknown]
  - Cardiac valve disease [Recovering/Resolving]
  - Cardiac murmur [Recovered/Resolved]
  - Extrapyramidal disorder [Unknown]
  - Dyspnoea [Recovered/Resolved]
  - Ophthalmic vein thrombosis [Unknown]
  - Hypoxia [Recovering/Resolving]
  - Condition aggravated [Unknown]
  - Chest pain [Unknown]
  - Arterial disorder [Unknown]
  - Crepitations [Recovering/Resolving]
  - Papilloedema [Not Recovered/Not Resolved]
  - Tremor [Recovering/Resolving]
  - Retinal vein thrombosis [Unknown]
  - Depression [Unknown]
  - Cerebellar syndrome [Unknown]
  - Cough [Recovering/Resolving]
  - Pneumonia [Unknown]
  - Anaemia [Unknown]
  - Neuropathy peripheral [Unknown]
  - Parkinsonism [Unknown]
  - Aortic valve disease [Unknown]

NARRATIVE: CASE EVENT DATE: 201705
